FAERS Safety Report 10176463 (Version 1)
Quarter: 2014Q2

REPORT INFORMATION
  Report Type: Spontaneous
  Country: FR (occurrence: FR)
  Receive Date: 20140516
  Receipt Date: 20140516
  Transmission Date: 20141212
  Serious: Yes (Hospitalization)
  Sender: FDA-Public Use
  Company Number: FR-PFIZER INC-2014131817

PATIENT
  Age: 85 Year
  Sex: Male

DRUGS (9)
  1. LYRICA [Suspect]
     Dosage: 1 DOSAGE FORM (DF)
     Route: 048
     Dates: start: 20140329, end: 20140329
  2. DALACINE [Suspect]
     Indication: OSTEOMYELITIS
     Dosage: 600 MG, 3X/DAY
     Route: 048
     Dates: start: 20140320, end: 20140329
  3. RIFADINE [Suspect]
     Indication: OSTEOMYELITIS
     Dosage: 900 MG, 2X/DAY
     Route: 048
     Dates: start: 20140320, end: 20140329
  4. TAZOCILLINE [Concomitant]
     Indication: OSTEOMYELITIS
     Dosage: UNK
     Dates: start: 20140313, end: 20140319
  5. PANTOPRAZOLE [Concomitant]
     Dosage: 20 MG, 1X/DAY
     Route: 048
  6. AMIKLIN [Concomitant]
     Indication: OSTEOMYELITIS
     Dosage: UNK
     Dates: start: 20140313, end: 20140319
  7. JANUVIA [Concomitant]
     Dosage: 100 MG, 1X/DAY
     Route: 048
  8. RISPERDAL [Concomitant]
     Dosage: 1 MG, 2X/DAY
     Route: 048
  9. MIANSERIN HYDROCHLORIDE [Concomitant]
     Dosage: 30 MG, 1X/DAY
     Route: 048

REACTIONS (2)
  - Rash papular [Recovered/Resolved]
  - Pruritus [Recovered/Resolved]
